FAERS Safety Report 6589989-2 (Version None)
Quarter: 2010Q1

REPORT INFORMATION
  Report Type: 
  Country: None (occurrence: None)
  Receive Date: 20100219
  Receipt Date: 20100208
  Transmission Date: 20100710
  Serious: Yes (Other)
  Sender: FDA-Public Use
  Company Number: PHHY2009DE51392

PATIENT
  Sex: Male
  Weight: 81 kg

DRUGS (6)
  1. LOCOL [Suspect]
     Indication: HYPERCHOLESTEROLAEMIA
     Dosage: 80MG PER DAY
     Route: 048
  2. FORTZAAR [Concomitant]
     Indication: CORONARY ARTERY DISEASE
     Dosage: UNK
  3. CONCOR [Concomitant]
     Dosage: UNK
  4. ASPIRIN [Concomitant]
     Dosage: UNK
  5. EZETROL [Concomitant]
     Dosage: UNK
  6. PANTOZOL [Concomitant]
     Dosage: UNK

REACTIONS (1)
  - OSTEOLYSIS [None]
